FAERS Safety Report 6695354-X (Version None)
Quarter: 2010Q2

REPORT INFORMATION
  Report Type: 
  Country: None (occurrence: None)
  Receive Date: 20100423
  Receipt Date: 20100423
  Transmission Date: 20101027
  Serious: Yes (Hospitalization)
  Sender: FDA-Public Use
  Company Number: None

PATIENT
  Age: 64 Year
  Sex: Female
  Weight: 82.4 kg

DRUGS (7)
  1. ALEVE (CAPLET) [Suspect]
     Indication: BACK PAIN
     Dosage: ? ? PO ; CHRONIC
     Route: 048
  2. IRON [Concomitant]
  3. VITAMIN B-12 [Concomitant]
  4. VIT D [Concomitant]
  5. M.V.I. [Concomitant]
  6. TUMS [Concomitant]
  7. ALEVE (CAPLET) [Concomitant]

REACTIONS (2)
  - DUODENAL ULCER PERFORATION [None]
  - INAPPROPRIATE SCHEDULE OF DRUG ADMINISTRATION [None]
